FAERS Safety Report 8098362-X (Version None)
Quarter: 2012Q1

REPORT INFORMATION
  Report Type: 
  Country: None (occurrence: None)
  Receive Date: 20120131
  Receipt Date: 20120124
  Transmission Date: 20120608
  Serious: Yes (Other)
  Sender: FDA-Public Use
  Company Number: FR-JNJFOC-20120112383

PATIENT
  Age: 74 Year
  Sex: Male

DRUGS (2)
  1. RISPERDAL [Suspect]
     Indication: PSYCHOTIC DISORDER
     Route: 048
     Dates: start: 20120113, end: 20120119
  2. RISPERDAL [Suspect]
     Route: 048
     Dates: start: 20120106, end: 20120113

REACTIONS (2)
  - ANAEMIA [None]
  - PANCYTOPENIA [None]
